FAERS Safety Report 12838484 (Version 2)
Quarter: 2016Q4

REPORT INFORMATION
  Report Type: Report from Study
  Country: JP (occurrence: JP)
  Receive Date: 20161012
  Receipt Date: 20161228
  Transmission Date: 20170207
  Serious: Yes (Other)
  Sender: FDA-Public Use
  Company Number: JP-JNJFOC-20161004735

PATIENT
  Age: 5 Month
  Sex: Female
  Weight: 6.6 kg

DRUGS (7)
  1. REMICADE [Suspect]
     Active Substance: INFLIXIMAB
     Indication: KAWASAKI^S DISEASE
     Route: 042
     Dates: start: 20160109, end: 20160109
  2. ULINASTATIN [Concomitant]
     Active Substance: ULINASTATIN
     Indication: KAWASAKI^S DISEASE
     Route: 042
     Dates: start: 20160108, end: 20160110
  3. PREDNISOLONE SODIUM SUCCINATE [Concomitant]
     Active Substance: PREDNISOLONE SODIUM SUCCINATE
     Indication: KAWASAKI^S DISEASE
     Route: 042
  4. ULINASTATIN [Concomitant]
     Active Substance: ULINASTATIN
     Indication: KAWASAKI^S DISEASE
     Route: 042
     Dates: start: 20160111, end: 20160115
  5. ULINASTATIN [Concomitant]
     Active Substance: ULINASTATIN
     Indication: KAWASAKI^S DISEASE
     Route: 042
     Dates: start: 20160116, end: 20160119
  6. ASPIRIN. [Concomitant]
     Active Substance: ASPIRIN
     Indication: KAWASAKI^S DISEASE
     Route: 048
     Dates: start: 20160104, end: 20160118
  7. ASPIRIN. [Concomitant]
     Active Substance: ASPIRIN
     Indication: KAWASAKI^S DISEASE
     Route: 048
     Dates: start: 20160119, end: 20160302

REACTIONS (1)
  - Anaemia [Recovered/Resolved]

NARRATIVE: CASE EVENT DATE: 20160113
